FAERS Safety Report 9686383 (Version 2)
Quarter: 2013Q4

REPORT INFORMATION
  Report Type: Report from Study
  Country: KE (occurrence: KE)
  Receive Date: 20131113
  Receipt Date: 20131113
  Transmission Date: 20140711
  Serious: Yes (Death)
  Sender: FDA-Public Use
  Company Number: KE-BRISTOL-MYERS SQUIBB COMPANY-19647924

PATIENT
  Age: 40 Year
  Sex: Male

DRUGS (6)
  1. EFAVIRENZ TABS [Suspect]
     Indication: HIV INFECTION
     Dates: start: 20130924, end: 20131007
  2. RALTEGRAVIR [Suspect]
     Indication: HIV INFECTION
     Dates: start: 20130924, end: 20131007
  3. TENOFOVIR [Suspect]
     Indication: HIV INFECTION
     Dates: start: 20130924, end: 20131007
  4. EMTRICITABINE [Suspect]
     Indication: HIV INFECTION
     Dosage: TABLET
     Dates: start: 20130924, end: 20131007
  5. CIPROFLOXACIN [Suspect]
     Dates: start: 20130918, end: 20130923
  6. SEPTRIN [Suspect]
     Dates: start: 20130918, end: 20131007

REACTIONS (1)
  - Malnutrition [Fatal]
